FAERS Safety Report 24295565 (Version 2)
Quarter: 2024Q4

REPORT INFORMATION
  Report Type: Spontaneous
  Country: US (occurrence: US)
  Receive Date: 20240908
  Receipt Date: 20241003
  Transmission Date: 20250115
  Serious: No
  Sender: SANOFI AVENTIS
  Company Number: US-SA-2024SA258692

PATIENT
  Age: 15 Year
  Sex: Female

DRUGS (2)
  1. DUPIXENT [Suspect]
     Active Substance: DUPILUMAB
     Indication: Gastroenteritis eosinophilic
     Dosage: 300 MG, QOW
     Route: 058
     Dates: start: 20240818, end: 2024
  2. DUPIXENT [Suspect]
     Active Substance: DUPILUMAB
     Dosage: 300 MG, QW
     Route: 058
     Dates: start: 20240922

REACTIONS (8)
  - Injection site urticaria [Unknown]
  - Injection site rash [Unknown]
  - Gastroenteritis eosinophilic [Unknown]
  - Condition aggravated [Unknown]
  - Nausea [Unknown]
  - Dizziness [Unknown]
  - Injection site erythema [Unknown]
  - Product use in unapproved indication [Unknown]

NARRATIVE: CASE EVENT DATE: 20240101
